FAERS Safety Report 5583406-7 (Version None)
Quarter: 2007Q4

REPORT INFORMATION
  Report Type: 
  Country: None (occurrence: None)
  Receive Date: 20071231
  Receipt Date: 20071219
  Transmission Date: 20080405
  Serious: Yes (Death, Hospitalization)
  Sender: FDA-Public Use
  Company Number: 2007BI026914

PATIENT
  Age: 42 Year
  Sex: Female

DRUGS (2)
  1. AVONEX [Suspect]
     Indication: MULTIPLE SCLEROSIS
     Dosage: 30 UG QW IM
     Route: 030
     Dates: start: 19980401, end: 20060518
  2. AVONEX [Suspect]
     Indication: MULTIPLE SCLEROSIS
     Dosage: 30 UG QW IM
     Route: 030
     Dates: start: 20060822, end: 20070801

REACTIONS (11)
  - ACIDOSIS [None]
  - BLOOD DISORDER [None]
  - CROHN'S DISEASE [None]
  - DECUBITUS ULCER [None]
  - DIALYSIS [None]
  - HAEMORRHAGE [None]
  - ILL-DEFINED DISORDER [None]
  - INTESTINAL PERFORATION [None]
  - RENAL FAILURE [None]
  - RESPIRATORY ARREST [None]
  - SEPSIS [None]
